FAERS Safety Report 4433350-3 (Version None)
Quarter: 2004Q3

REPORT INFORMATION
  Report Type: 
  Country: None (occurrence: None)
  Receive Date: 20040824
  Receipt Date: 20040813
  Transmission Date: 20050211
  Serious: Yes (Hospitalization)
  Sender: FDA-Public Use
  Company Number: 2004-06-1376

PATIENT
  Age: 79 Year
  Sex: Female

DRUGS (2)
  1. CLARITIN [Suspect]
     Dosage: 10 MG ORAL
     Route: 048
     Dates: start: 20040531, end: 20040603
  2. BETAMETHASONE/DEXCHLORPHENIRAMINE MALEATE [Concomitant]

REACTIONS (4)
  - ANOREXIA [None]
  - HEPATITIS [None]
  - PYREXIA [None]
  - VOMITING [None]
